FAERS Safety Report 8583270-8 (Version None)
Quarter: 2012Q3

REPORT INFORMATION
  Report Type: 
  Country: None (occurrence: None)
  Receive Date: 20120809
  Receipt Date: 20120731
  Transmission Date: 20120928
  Serious: Yes (Other)
  Sender: FDA-Public Use
  Company Number: US-ABBOTT-12P-163-0963598-00

PATIENT
  Sex: Female
  Weight: 136.2 kg

DRUGS (3)
  1. PREDNISONE TAB [Concomitant]
     Indication: PSORIATIC ARTHROPATHY
  2. HUMIRA [Suspect]
     Indication: PSORIATIC ARTHROPATHY
     Dates: start: 20100101
  3. METHOTREXATE [Concomitant]
     Indication: PSORIATIC ARTHROPATHY

REACTIONS (3)
  - JOINT DISLOCATION [None]
  - FALL [None]
  - MUSCULOSKELETAL PAIN [None]
